FAERS Safety Report 6547021-0 (Version None)
Quarter: 2010Q1

REPORT INFORMATION
  Report Type: 
  Country: None (occurrence: None)
  Receive Date: 20100122
  Receipt Date: 20100117
  Transmission Date: 20100710
  Serious: Yes (Hospitalization)
  Sender: FDA-Public Use
  Company Number: B0628436A

PATIENT
  Age: 26 Year
  Sex: Female

DRUGS (1)
  1. AUGMENTIN [Suspect]
     Indication: TONSILLITIS
     Dosage: 1G PER DAY
     Route: 048
     Dates: start: 20090117, end: 20090117

REACTIONS (7)
  - EYE SWELLING [None]
  - HEMIPARESIS [None]
  - LARYNGEAL OEDEMA [None]
  - LIP OEDEMA [None]
  - RESPIRATORY DISORDER [None]
  - URTICARIA [None]
  - VOMITING [None]
